FAERS Safety Report 5844176-8 (Version None)
Quarter: 2008Q3

REPORT INFORMATION
  Report Type: 
  Country: None (occurrence: None)
  Receive Date: 20080813
  Receipt Date: 20080801
  Transmission Date: 20090109
  Serious: Yes (Other)
  Sender: FDA-Public Use
  Company Number: US-PFIZER INC-2008007064

PATIENT
  Sex: Female

DRUGS (10)
  1. BEXTRA [Suspect]
     Indication: PAIN IN EXTREMITY
  2. NEXIUM [Concomitant]
  3. MICARDIS [Concomitant]
  4. NORVASC [Concomitant]
  5. CYTOMEL [Concomitant]
  6. HYDROCHLOROTHIAZIDE [Concomitant]
  7. LORATADINE [Concomitant]
  8. FUROSEMIDE [Concomitant]
  9. POTASSIUM CHLORIDE [Concomitant]
  10. ALBUTEROL [Concomitant]

REACTIONS (1)
  - STEVENS-JOHNSON SYNDROME [None]
